FAERS Safety Report 6509651-1 (Version None)
Quarter: 2009Q4

REPORT INFORMATION
  Report Type: 
  Country: None (occurrence: None)
  Receive Date: 20091222
  Receipt Date: 20091215
  Transmission Date: 20100525
  Serious: Yes (Other)
  Sender: FDA-Public Use
  Company Number: GB-ASTRAZENECA-2009SE32080

PATIENT
  Age: 46 Year
  Sex: Female
  Weight: 68 kg

DRUGS (4)
  1. QUETIAPINE FUMARATE [Suspect]
     Route: 048
  2. RISPERDAL [Suspect]
     Indication: MAJOR DEPRESSION
     Route: 048
     Dates: start: 20070508
  3. VENLAFAXINE [Suspect]
     Route: 065
  4. LITHIUM CARBONATE [Concomitant]
     Dates: start: 20070201

REACTIONS (2)
  - BLOOD PROLACTIN INCREASED [None]
  - BREAST PAIN [None]
